FAERS Safety Report 9914127 (Version 1)
Quarter: 2014Q1

REPORT INFORMATION
  Report Type: Spontaneous
  Country: US (occurrence: None)
  Receive Date: 20140218
  Receipt Date: 20140218
  Transmission Date: 20141002
  Serious: Yes (Other)
  Sender: FDA-Public Use
  Company Number: AMAG20400024

PATIENT
  Sex: Female

DRUGS (1)
  1. FERAHEME (FERUMOXYTOL) INJECTION, 510MG [Suspect]
     Route: 042
     Dates: start: 20140204, end: 20140204

REACTIONS (3)
  - Swelling face [None]
  - Dyspnoea [None]
  - Adverse drug reaction [None]
